FAERS Safety Report 6708845-X (Version None)
Quarter: 2010Q2

REPORT INFORMATION
  Report Type: 
  Country: None (occurrence: None)
  Receive Date: 20100503
  Receipt Date: 20100503
  Transmission Date: 20101027
  Serious: No
  Sender: FDA-Public Use
  Company Number: None

PATIENT
  Sex: Female

DRUGS (1)
  1. ADVANCED WHITE TOOTHPASTE ARM + HAMMER [Suspect]
     Indication: TOOTH DISCOLOURATION
     Dosage: DENTAL
     Route: 004
     Dates: start: 20100415, end: 20100430

REACTIONS (1)
  - GINGIVAL PAIN [None]
